FAERS Safety Report 12424462 (Version 1)
Quarter: 2016Q2

REPORT INFORMATION
  Report Type: Spontaneous
  Country: US (occurrence: US)
  Receive Date: 20160601
  Receipt Date: 20160601
  Transmission Date: 20160815
  Serious: No
  Sender: FDA-Public Use
  Company Number: US-NOVEN PHARMACEUTICALS, INC.-US2016000008

PATIENT
  Age: 50 Year
  Sex: Female

DRUGS (6)
  1. DAYTRANA [Suspect]
     Active Substance: METHYLPHENIDATE
     Indication: FATIGUE
     Dosage: 20 MG, UNKNOWN
     Route: 062
     Dates: start: 201505
  2. DAYTRANA [Suspect]
     Active Substance: METHYLPHENIDATE
     Indication: FIBROMYALGIA
  3. DEPLIN [Concomitant]
     Active Substance: LEVOMEFOLATE CALCIUM
     Indication: DEPRESSION
  4. TRINTELLIX [Concomitant]
     Active Substance: VORTIOXETINE HYDROBROMIDE
     Indication: DEPRESSION
  5. TOPAMAX [Concomitant]
     Active Substance: TOPIRAMATE
     Indication: HEADACHE
  6. EQUANIL [Concomitant]
     Active Substance: MEPROBAMATE
     Indication: CONNECTIVE TISSUE DISORDER

REACTIONS (2)
  - Off label use [Not Recovered/Not Resolved]
  - No adverse event [Unknown]

NARRATIVE: CASE EVENT DATE: 201505
